FAERS Safety Report 24035395 (Version 1)
Quarter: 2024Q3

REPORT INFORMATION
  Report Type: Spontaneous
  Country: JP (occurrence: JP)
  Receive Date: 20240701
  Receipt Date: 20240701
  Transmission Date: 20241017
  Serious: Yes (Hospitalization, Other)
  Sender: JUBILANT
  Company Number: None

PATIENT
  Age: 82 Year
  Sex: Female

DRUGS (15)
  1. DONEPEZIL HYDROCHLORIDE [Suspect]
     Active Substance: DONEPEZIL HYDROCHLORIDE
     Indication: Dementia Alzheimer^s type
     Dosage: 3 MG, ONCE PER DAY (AFTER BREAKFAST)
     Route: 065
     Dates: end: 20230926
  2. STALEVO [Suspect]
     Active Substance: CARBIDOPA\ENTACAPONE\LEVODOPA
     Indication: Parkinson^s disease
     Dosage: 1 DOSAGE FORM EVERY 8 HOURS (AFTER MEAL)
     Route: 065
     Dates: end: 20230926
  3. ZONISAMIDE [Suspect]
     Active Substance: ZONISAMIDE
     Indication: Parkinson^s disease
     Dosage: 50 MG, ONCE PER DAY (AFTER BREAKFAST)
     Route: 065
     Dates: end: 20230926
  4. RISEDRONATE SODIUM [Concomitant]
     Active Substance: RISEDRONATE SODIUM
     Indication: Osteoporosis
     Dosage: 17.5 MG, PER WEEK
     Route: 048
     Dates: start: 2007, end: 20231007
  5. MAGNESIUM OXIDE [Concomitant]
     Active Substance: MAGNESIUM OXIDE
     Indication: Constipation
     Dosage: 500 MG, UNK (AFTER BREAKFAST AND DINNER)
     Route: 065
  6. METHYLCOBALAMIN [Concomitant]
     Active Substance: METHYLCOBALAMIN
     Indication: Hypoaesthesia
     Dosage: 500 ?G, UNK (AFTER MEAL) EVERY 8 HOURS
     Route: 065
  7. ACETAMINOPHEN [Concomitant]
     Active Substance: ACETAMINOPHEN
     Indication: Inflammation
     Dosage: 200 MG , UNK (AFTER MEAL) EVERY 8 HOURS
     Route: 065
  8. CRESTOR [Concomitant]
     Active Substance: ROSUVASTATIN CALCIUM
     Indication: Blood cholesterol
     Dosage: 2.5 MG, ONCE PER DAY (AFTER BREAKFAST)
     Route: 065
  9. RABEPRAZOLE SODIUM [Concomitant]
     Active Substance: RABEPRAZOLE SODIUM
     Indication: Oesophagitis
     Dosage: 10 MG, ONCE PER DAY (AFTER BREAKFAST)
     Route: 065
  10. MOSAPRIDE [Concomitant]
     Active Substance: MOSAPRIDE
     Indication: Gastritis
     Dosage: 5 MG,  UNK (AFTER MEAL), EVERY 8 HOURS
     Route: 065
  11. CARBIDOPA\LEVODOPA [Concomitant]
     Active Substance: CARBIDOPA\LEVODOPA
     Indication: Parkinson^s disease
     Dosage: 1 DOSAGE FORM, ONCE PER DAY (UPON WAKING UP)
     Route: 048
  12. CARBIDOPA\LEVODOPA [Concomitant]
     Active Substance: CARBIDOPA\LEVODOPA
     Indication: Parkinson^s disease
     Dosage: 200 MG, ONCE PER DAY
     Route: 048
  13. HERBALS [Concomitant]
     Active Substance: HERBALS
     Indication: Abdominal distension
     Dosage: 2.5 G, UNK (AFTER MEAL) EVERY 8 HOURS
     Route: 048
  14. MIRABEGRON [Concomitant]
     Active Substance: MIRABEGRON
     Indication: Hypertonic bladder
     Dosage: 25 MG, ONCE PER DAY (AFTER BREAKFAST)
     Route: 065
  15. HERBALS [Concomitant]
     Active Substance: HERBALS
     Indication: Mental disorder
     Dosage: 2.5 G, UNK (AFTER MEAL); EVERY 8 HOURS
     Route: 048

REACTIONS (2)
  - Delusion [Recovered/Resolved]
  - Hallucination [Recovered/Resolved]

NARRATIVE: CASE EVENT DATE: 20210101
